FAERS Safety Report 5061164-2 (Version None)
Quarter: 2006Q3

REPORT INFORMATION
  Report Type: 
  Country: None (occurrence: None)
  Receive Date: 20060725
  Receipt Date: 20060713
  Transmission Date: 20061208
  Serious: Yes (Hospitalization)
  Sender: FDA-Public Use
  Company Number: JP-BRISTOL-MYERS SQUIBB COMPANY-13448378

PATIENT
  Age: 56 Year
  Sex: Male

DRUGS (8)
  1. ENDOXAN [Suspect]
     Indication: DIFFUSE LARGE B-CELL LYMPHOMA
     Dosage: GIVEN ON DAY 1
     Dates: start: 20001101, end: 20010101
  2. ETOPOSIDE [Suspect]
     Indication: DIFFUSE LARGE B-CELL LYMPHOMA
     Dosage: GIVEN ON DAY 1
     Dates: start: 20010101, end: 20010101
  3. ONCOVIN [Suspect]
     Indication: DIFFUSE LARGE B-CELL LYMPHOMA
     Dosage: GIVEN ON DAY 8
     Dates: start: 20001101, end: 20010101
  4. ADRIAMYCIN PFS [Suspect]
     Indication: DIFFUSE LARGE B-CELL LYMPHOMA
     Dosage: GIVEN ON DAY 1
     Dates: start: 20001101, end: 20010101
  5. CYTARABINE [Suspect]
     Indication: DIFFUSE LARGE B-CELL LYMPHOMA
     Dosage: GIVEN ON DAY 8
     Dates: start: 20010101, end: 20010101
  6. METHOTREXATE [Concomitant]
     Dosage: GIVEN ON DAY 8
     Dates: start: 20010101, end: 20010101
  7. PREDNISOLONE [Concomitant]
     Dosage: GIVEN ON DAYS 1 THROUGH 15
     Dates: start: 20000101, end: 20010101
  8. BLEOMYCIN [Concomitant]
     Dosage: GIVEN ON DAY 8
     Dates: start: 20010101, end: 20010101

REACTIONS (2)
  - INTESTINAL PERFORATION [None]
  - PERITONITIS [None]
